FAERS Safety Report 25153722 (Version 3)
Quarter: 2025Q3

REPORT INFORMATION
  Report Type: Spontaneous
  Country: EU (occurrence: EU)
  Receive Date: 20250403
  Receipt Date: 20250810
  Transmission Date: 20251020
  Serious: Yes (Hospitalization, Other)
  Sender: ALEXION PHARMACEUTICALS
  Company Number: EU-SA-2025SA084449

PATIENT
  Age: 66 Year
  Sex: Female
  Weight: 80 kg

DRUGS (80)
  1. FASLODEX [Suspect]
     Active Substance: FULVESTRANT
     Indication: Breast cancer metastatic
     Dosage: 500 MG, QM
     Route: 065
     Dates: start: 20171116, end: 20191001
  2. FASLODEX [Suspect]
     Active Substance: FULVESTRANT
     Dosage: 500 MG, BIW
     Dates: start: 20171002
  3. TRASTUZUMAB DERUXTECAN [Suspect]
     Active Substance: TRASTUZUMAB DERUXTECAN
     Indication: Breast cancer metastatic
     Route: 065
  4. BLEOMYCIN SULFATE [Suspect]
     Active Substance: BLEOMYCIN SULFATE
     Indication: Breast cancer metastatic
     Dosage: 26.85 MG, QD
     Route: 065
     Dates: start: 20200519, end: 20200519
  5. BLEOMYCIN SULFATE [Suspect]
     Active Substance: BLEOMYCIN SULFATE
     Indication: HER2 positive breast cancer
     Dosage: 26.85 MG, QD
     Route: 065
     Dates: start: 20210105, end: 20210105
  6. BLEOMYCIN SULFATE [Suspect]
     Active Substance: BLEOMYCIN SULFATE
     Dosage: 1 DF, QD
     Route: 065
     Dates: start: 20210105, end: 20250105
  7. CAPECITABINE [Suspect]
     Active Substance: CAPECITABINE
     Indication: Breast cancer metastatic
     Dosage: 2000 MG, QD
     Route: 065
  8. CAPECITABINE [Suspect]
     Active Substance: CAPECITABINE
     Dosage: 3000 MG, QD;
     Route: 065
  9. CAPECITABINE [Suspect]
     Active Substance: CAPECITABINE
     Dosage: 3000 MG, QD
  10. CAPECITABINE [Suspect]
     Active Substance: CAPECITABINE
     Dosage: 3500 MG, QD
     Route: 065
  11. DOCETAXEL [Suspect]
     Active Substance: DOCETAXEL
     Indication: Breast cancer metastatic
     Route: 065
  12. DOCETAXEL [Suspect]
     Active Substance: DOCETAXEL
     Dosage: 190 MG, Q3W
     Route: 065
  13. DOCETAXEL [Suspect]
     Active Substance: DOCETAXEL
     Dosage: 180 MG, Q3W
  14. DOCETAXEL [Suspect]
     Active Substance: DOCETAXEL
     Dosage: 134.25 MG, Q3W
  15. DOCETAXEL [Suspect]
     Active Substance: DOCETAXEL
  16. TRASTUZUMAB [Suspect]
     Active Substance: TRASTUZUMAB
     Indication: Breast cancer metastatic
     Dosage: 468 MG QD
     Route: 065
     Dates: start: 20170720, end: 20170720
  17. TRASTUZUMAB [Suspect]
     Active Substance: TRASTUZUMAB
     Dosage: 560 MG, Q3W
     Dates: start: 20201230, end: 20210210
  18. TRASTUZUMAB [Suspect]
     Active Substance: TRASTUZUMAB
     Dosage: 540 MG, Q3W
     Dates: start: 20200422, end: 20200615
  19. TRASTUZUMAB [Suspect]
     Active Substance: TRASTUZUMAB
     Dosage: 624 MG, QD
     Dates: start: 20170224, end: 20170224
  20. TRASTUZUMAB [Suspect]
     Active Substance: TRASTUZUMAB
     Dosage: 462 MG, Q3W
  21. TRASTUZUMAB [Suspect]
     Active Substance: TRASTUZUMAB
     Dosage: 432 MG, QD
  22. TRASTUZUMAB [Suspect]
     Active Substance: TRASTUZUMAB
     Dosage: 414 MG, Q3W
  23. TRASTUZUMAB [Suspect]
     Active Substance: TRASTUZUMAB
     Dosage: 408 MG, Q3W
  24. TRASTUZUMAB [Suspect]
     Active Substance: TRASTUZUMAB
  25. DOXORUBICIN [Suspect]
     Active Substance: DOXORUBICIN
     Indication: Breast cancer metastatic
     Dosage: 104.400MG QD
     Route: 065
     Dates: start: 20210608, end: 20210608
  26. VINORELBINE TARTRATE [Suspect]
     Active Substance: VINORELBINE TARTRATE
     Indication: Breast cancer metastatic
     Dosage: 45 MG, Q3W
     Route: 065
     Dates: start: 20200422, end: 20200722
  27. TUCATINIB [Suspect]
     Active Substance: TUCATINIB
     Indication: Breast cancer metastatic
     Dosage: 300 MG, BID
     Route: 065
     Dates: start: 20201230, end: 20210210
  28. KADCYLA [Suspect]
     Active Substance: ADO-TRASTUZUMAB EMTANSINE
     Indication: Breast cancer metastatic
     Dosage: 270 MG, Q3W
     Route: 065
     Dates: start: 20190306, end: 20190909
  29. PERJETA [Suspect]
     Active Substance: PERTUZUMAB
     Indication: Breast cancer metastatic
     Dosage: 840 MG, QD
     Route: 065
     Dates: start: 20210317, end: 20210428
  30. PERJETA [Suspect]
     Active Substance: PERTUZUMAB
     Dosage: 840 MG, QD
     Dates: start: 20200422, end: 20200615
  31. PERJETA [Suspect]
     Active Substance: PERTUZUMAB
     Dosage: 840 MG, QD
     Dates: start: 20170224
  32. TYKERB [Suspect]
     Active Substance: LAPATINIB DITOSYLATE
     Indication: Breast cancer metastatic
     Dosage: 1000 MG, QD
     Route: 065
     Dates: start: 20200108, end: 20200421
  33. TYKERB [Suspect]
     Active Substance: LAPATINIB DITOSYLATE
     Dosage: 1250 MG, QD
     Dates: start: 20191002, end: 20200107
  34. DENOSUMAB [Suspect]
     Active Substance: DENOSUMAB
     Indication: Breast cancer metastatic
     Dosage: 120 MG, Q4W
     Route: 065
     Dates: start: 20201230, end: 20210210
  35. PERTUZUMAB [Suspect]
     Active Substance: PERTUZUMAB
     Indication: Breast cancer metastatic
     Dosage: 840MG QD (MOST RECENT DOSE PRIOR TO THE EVENT WORSENING OF BRAIN METASTASES: 17MAR2017 MOST RECENT)
     Route: 065
     Dates: start: 20170224, end: 20170224
  36. ADO-TRASTUZUMAB EMTANSINE [Suspect]
     Active Substance: ADO-TRASTUZUMAB EMTANSINE
     Indication: Breast cancer metastatic
     Dosage: 270 MG, Q3W
     Route: 065
     Dates: start: 20190306, end: 20190909
  37. LAPATINIB [Suspect]
     Active Substance: LAPATINIB
     Indication: Breast cancer metastatic
     Dosage: 1250 MG, QD
     Route: 065
     Dates: start: 20191002, end: 20200107
  38. POLYETHYLENE GLYCOL 3350\POTASSIUM CHLORIDE\SODIUM BICARBONATE\SODIUM [Concomitant]
     Active Substance: POLYETHYLENE GLYCOL 3350\POTASSIUM CHLORIDE\SODIUM BICARBONATE\SODIUM CHLORIDE
     Dates: start: 20210608, end: 20210616
  39. Scottopect [Concomitant]
     Dates: start: 20210611, end: 20210613
  40. Paspertin [Concomitant]
     Dates: start: 20210608, end: 20210623
  41. MORPHINE [Concomitant]
     Active Substance: MORPHINE
  42. ALPRAZOLAM [Concomitant]
     Active Substance: ALPRAZOLAM
     Dates: start: 20210613, end: 20210615
  43. VITAMIN C [Concomitant]
     Active Substance: ASCORBIC ACID
     Dates: start: 20210611, end: 20210614
  44. HYDROMORPHONE HYDROCHLORIDE [Concomitant]
     Active Substance: HYDROMORPHONE HYDROCHLORIDE
     Dates: start: 20210611, end: 20210615
  45. Novalgin [Concomitant]
     Dates: start: 20210608, end: 20210615
  46. Neriforte [Concomitant]
  47. Cal c vita [Concomitant]
     Dates: start: 20170203, end: 20210612
  48. ZOFRAN [Concomitant]
     Active Substance: ONDANSETRON HYDROCHLORIDE
     Dates: start: 20210611, end: 20210616
  49. Halset [Concomitant]
     Dates: start: 20210611, end: 20210615
  50. EUTHYROX [Concomitant]
     Active Substance: LEVOTHYROXINE SODIUM
     Dates: start: 20170303, end: 20210615
  51. ONDANSETRON [Concomitant]
     Active Substance: ONDANSETRON
     Dates: start: 20210608, end: 20210610
  52. Temesta [Concomitant]
     Dates: start: 20210611, end: 20210621
  53. FENTANYL [Concomitant]
     Active Substance: FENTANYL
  54. ACETAMINOPHEN [Concomitant]
     Active Substance: ACETAMINOPHEN
     Dates: start: 20210622, end: 20210622
  55. BUTYLSCOPOLAMINE BROMIDE [Concomitant]
     Active Substance: BUTYLSCOPOLAMINE BROMIDE
     Dates: start: 20210618, end: 20210618
  56. Oleovit [Concomitant]
     Dates: start: 20170329, end: 20210615
  57. Paracodin [Concomitant]
     Dates: start: 20210428, end: 20210615
  58. PANTOPRAZOLE [Concomitant]
     Active Substance: PANTOPRAZOLE
     Dates: start: 20210317, end: 20210623
  59. Leukichtan [Concomitant]
     Dates: start: 20200430, end: 20200515
  60. DRONABINOL [Concomitant]
     Active Substance: DRONABINOL
     Dates: start: 20210608, end: 20210612
  61. EDOXABAN TOSYLATE [Concomitant]
     Active Substance: EDOXABAN TOSYLATE
     Dates: start: 20200613, end: 20210611
  62. XGEVA [Concomitant]
     Active Substance: DENOSUMAB
  63. LORAZEPAM [Concomitant]
     Active Substance: LORAZEPAM
  64. PREGABALIN [Concomitant]
     Active Substance: PREGABALIN
  65. ZIEXTENZO [Concomitant]
     Active Substance: PEGFILGRASTIM-BMEZ
  66. LACTULOSE [Concomitant]
     Active Substance: LACTULOSE
  67. BETAMETHASONE DIPROPIONATE [Concomitant]
     Active Substance: BETAMETHASONE DIPROPIONATE
  68. Ponveridol [Concomitant]
  69. CARBOXYMETHYLCELLULOSE SODIUM [Concomitant]
     Active Substance: CARBOXYMETHYLCELLULOSE SODIUM
  70. LOVENOX [Concomitant]
     Active Substance: ENOXAPARIN SODIUM
     Dates: start: 20170224, end: 20171130
  71. LEVOFLOXACIN [Concomitant]
     Active Substance: LEVOFLOXACIN
     Dates: start: 20200506, end: 20200512
  72. MORPHINE SULFATE [Concomitant]
     Active Substance: MORPHINE SULFATE
  73. Kalioral [Concomitant]
     Dates: start: 20200427, end: 20200428
  74. DEXAMETHASONE [Concomitant]
     Active Substance: DEXAMETHASONE
     Dates: start: 20170810, end: 20200505
  75. SILICON [Concomitant]
     Active Substance: SILICON
     Dates: start: 20200521, end: 20200602
  76. BETAISODONA [Concomitant]
     Active Substance: POVIDONE-IODINE
     Dates: start: 20200430, end: 20200515
  77. CALCIUM CARBONATE\CHOLECALCIFEROL [Concomitant]
     Active Substance: CALCIUM CARBONATE\CHOLECALCIFEROL
  78. Aceclofenac and paracetamol [Concomitant]
     Dates: start: 20210622, end: 20210622
  79. KCL [Concomitant]
     Active Substance: POTASSIUM CHLORIDE
  80. TAZOBACTAM [Concomitant]
     Active Substance: TAZOBACTAM
     Dates: start: 20200423, end: 20200504

REACTIONS (22)
  - Metastases to central nervous system [Not Recovered/Not Resolved]
  - Metastases to lymph nodes [Not Recovered/Not Resolved]
  - Pseudomonal sepsis [Recovered/Resolved]
  - Sepsis [Recovered/Resolved]
  - Streptococcal sepsis [Recovered/Resolved]
  - Vascular device infection [Recovered/Resolved]
  - Brain oedema [Not Recovered/Not Resolved]
  - C-reactive protein increased [Not Recovered/Not Resolved]
  - Skin fissures [Recovered/Resolved]
  - Varicose vein [Not Recovered/Not Resolved]
  - Nail bed inflammation [Unknown]
  - Eczema [Not Recovered/Not Resolved]
  - Restlessness [Unknown]
  - Nasal mucosal disorder [Recovered/Resolved]
  - Candida infection [Not Recovered/Not Resolved]
  - Back pain [Recovered/Resolved]
  - Vomiting [Recovered/Resolved]
  - Nausea [Recovered/Resolved]
  - Fatigue [Not Recovered/Not Resolved]
  - Paronychia [Recovered/Resolved]
  - Pleural effusion [Recovered/Resolved]
  - Off label use [Unknown]

NARRATIVE: CASE EVENT DATE: 20191101
